FAERS Safety Report 6491787-5 (Version None)
Quarter: 2009Q4

REPORT INFORMATION
  Report Type: 
  Country: None (occurrence: None)
  Receive Date: 20091125
  Receipt Date: 20090506
  Transmission Date: 20100525
  Serious: Yes (Other)
  Sender: FDA-Public Use
  Company Number: 2009BH008112

PATIENT
  Age: 36 Year
  Sex: Male

DRUGS (7)
  1. DIANEAL [Suspect]
     Indication: PERITONEAL DIALYSIS
     Dosage: 17 L;EVERY DAY IP
     Route: 033
     Dates: start: 20080701
  2. NEXIUM [Concomitant]
  3. RENVELA [Concomitant]
  4. TOPROL-XL [Concomitant]
  5. ARANESP [Concomitant]
  6. TRAZODONE HYDROCHLORIDE [Concomitant]
  7. NEPHRONT [Concomitant]

REACTIONS (1)
  - PERITONITIS BACTERIAL [None]
